APPROVED DRUG PRODUCT: XYZAL ALLERGY 24HR
Active Ingredient: LEVOCETIRIZINE DIHYDROCHLORIDE
Strength: 2.5MG/5ML
Dosage Form/Route: SOLUTION;ORAL
Application: N209090 | Product #001
Applicant: CHATTEM INC DBA SANOFI CONSUMER HEALTHCARE
Approved: Jan 31, 2017 | RLD: Yes | RS: Yes | Type: OTC

PATENTS:
Patent 8633194 | Expires: Oct 16, 2027